FAERS Safety Report 10349687 (Version 1)
Quarter: 2014Q3

REPORT INFORMATION
  Report Type: Spontaneous
  Country: IT (occurrence: None)
  Receive Date: 20140728
  Receipt Date: 20140728
  Transmission Date: 20150326
  Serious: Yes (Hospitalization)
  Sender: FDA-Public Use
  Company Number: 2014-IT-009048

PATIENT
  Age: 31 Year
  Sex: Male

DRUGS (2)
  1. VALPROATE (VALPROATE SODIUM) [Concomitant]
  2. CLOZAPINE. [Suspect]
     Active Substance: CLOZAPINE
     Indication: SCHIZOPHRENIA, UNDIFFERENTIATED TYPE
     Route: 048
     Dates: start: 201205

REACTIONS (1)
  - Pericarditis [None]

NARRATIVE: CASE EVENT DATE: 201205
